FAERS Safety Report 23050251 (Version 1)
Quarter: 2023Q4

REPORT INFORMATION
  Report Type: Spontaneous
  Country: CA (occurrence: CA)
  Receive Date: 20231010
  Receipt Date: 20231010
  Transmission Date: 20240110
  Serious: Yes (Other)
  Sender: FDA-Public Use
  Company Number: CA-FreseniusKabi-FK202315885

PATIENT
  Age: 27 Year
  Sex: Female

DRUGS (5)
  1. MIDAZOLAM HYDROCHLORIDE [Suspect]
     Active Substance: MIDAZOLAM HYDROCHLORIDE
     Indication: Insomnia
     Route: 065
  2. CLONAZEPAM [Suspect]
     Active Substance: CLONAZEPAM
     Indication: Insomnia
     Route: 065
  3. CLONAZEPAM [Suspect]
     Active Substance: CLONAZEPAM
     Indication: Insomnia
     Route: 065
  4. DIENOGEST [Suspect]
     Active Substance: DIENOGEST
     Indication: Uterine leiomyoma
     Dosage: THERAPY 1 AND 2 TABLETS
     Route: 065
  5. DIENOGEST [Suspect]
     Active Substance: DIENOGEST
     Indication: Endometriosis

REACTIONS (5)
  - Abdominal pain [Not Recovered/Not Resolved]
  - Drug ineffective [Not Recovered/Not Resolved]
  - Drug interaction [Not Recovered/Not Resolved]
  - Genital haemorrhage [Not Recovered/Not Resolved]
  - Hypomenorrhoea [Not Recovered/Not Resolved]
